FAERS Safety Report 10883393 (Version 1)
Quarter: 2015Q1

REPORT INFORMATION
  Report Type: Spontaneous
  Country: CO (occurrence: CO)
  Receive Date: 20150303
  Receipt Date: 20150303
  Transmission Date: 20150721
  Serious: Yes (Hospitalization, Other)
  Sender: FDA-Public Use
  Company Number: CO-PFIZER INC-2015070895

PATIENT
  Age: 49 Year
  Sex: Male

DRUGS (1)
  1. EPAMIN [Suspect]
     Active Substance: PHENYTOIN SODIUM
     Dosage: 100 MG, 3X/DAY
     Route: 048

REACTIONS (26)
  - Seizure [Not Recovered/Not Resolved]
  - Hypoaesthesia [Recovered/Resolved]
  - Condition aggravated [Not Recovered/Not Resolved]
  - Osteoporosis [Not Recovered/Not Resolved]
  - Mobility decreased [Unknown]
  - Dizziness [Recovered/Resolved]
  - Blood glucose increased [Unknown]
  - Overdose [Recovered/Resolved]
  - Speech disorder [Unknown]
  - Migraine [Recovered/Resolved]
  - Osteoarthritis [Not Recovered/Not Resolved]
  - Accident at work [Recovered/Resolved]
  - Fall [Recovered/Resolved]
  - Onychomadesis [Recovered/Resolved]
  - Dizziness [Recovered/Resolved]
  - Nausea [Recovered/Resolved]
  - Fall [Recovered/Resolved]
  - Spinal fracture [Recovered/Resolved]
  - Foot fracture [Recovered/Resolved]
  - Overdose [Recovered/Resolved]
  - Cardiac disorder [Recovered/Resolved]
  - Hypoaesthesia oral [Recovered/Resolved]
  - Bone fissure [Not Recovered/Not Resolved]
  - Paraesthesia [Unknown]
  - Blood pressure increased [Unknown]
  - Amnesia [Not Recovered/Not Resolved]

NARRATIVE: CASE EVENT DATE: 1992
